FAERS Safety Report 4843920-6 (Version None)
Quarter: 2005Q4

REPORT INFORMATION
  Report Type: 
  Country: None (occurrence: None)
  Receive Date: 20051202
  Receipt Date: 20050426
  Transmission Date: 20060501
  Serious: No
  Sender: FDA-Public Use
  Company Number: US-GLAXOSMITHKLINE-A0556372A

PATIENT
  Age: 29 Year
  Sex: Female
  Weight: 49 kg

DRUGS (1)
  1. AUGMENTIN [Suspect]
     Indication: ACUTE TONSILLITIS
     Dosage: 1TAB TWICE PER DAY
     Route: 048
     Dates: start: 20050416, end: 20050426

REACTIONS (1)
  - DIARRHOEA [None]
